FAERS Safety Report 19489625 (Version 1)
Quarter: 2021Q3

REPORT INFORMATION
  Report Type: Spontaneous
  Country: US (occurrence: US)
  Receive Date: 20210704
  Receipt Date: 20210704
  Transmission Date: 20211014
  Serious: Yes (Other)
  Sender: FDA-Public Use
  Company Number: US-DEXPHARM-20210769

PATIENT
  Age: 50 Year
  Sex: Female

DRUGS (1)
  1. PERIOCHIP [Suspect]
     Active Substance: CHLORHEXIDINE GLUCONATE
     Dosage: 36%, 2.5 MG CHIP
     Route: 004

REACTIONS (2)
  - Application site necrosis [Unknown]
  - Pain [Recovering/Resolving]
